FAERS Safety Report 11762695 (Version 1)
Quarter: 2015Q4

REPORT INFORMATION
  Report Type: Spontaneous
  Country: US (occurrence: US)
  Receive Date: 20151120
  Receipt Date: 20151120
  Transmission Date: 20160304
  Serious: Yes (Death, Hospitalization, Other)
  Sender: FDA-Public Use
  Company Number: US-BRISTOL-MYERS SQUIBB COMPANY-BMS-2015-080348

PATIENT
  Sex: Female

DRUGS (3)
  1. OPDIVO [Suspect]
     Active Substance: NIVOLUMAB
     Dosage: 180 MG, Q2WK
     Route: 065
     Dates: start: 20150408
  2. OPDIVO [Suspect]
     Active Substance: NIVOLUMAB
     Dosage: 180 MG, Q2WK
     Route: 065
     Dates: start: 20150422
  3. OPDIVO [Suspect]
     Active Substance: NIVOLUMAB
     Indication: LUNG NEOPLASM MALIGNANT
     Dosage: 180 MG, Q2WK
     Route: 065
     Dates: start: 20150325

REACTIONS (1)
  - Death [Fatal]
